FAERS Safety Report 9880834 (Version 2)
Quarter: 2014Q2

REPORT INFORMATION
  Report Type: Spontaneous
  Country: US (occurrence: US)
  Receive Date: 20140207
  Receipt Date: 20140421
  Transmission Date: 20141212
  Serious: No
  Sender: FDA-Public Use
  Company Number: US-PFIZER INC-2014035328

PATIENT
  Age: 67 Year
  Sex: Female
  Weight: 87.5 kg

DRUGS (17)
  1. XELJANZ [Suspect]
     Indication: RHEUMATOID ARTHRITIS
     Dosage: 5 MG 1 TABLET, 2X/DAY
     Route: 048
     Dates: start: 20131101
  2. XELJANZ [Suspect]
     Dosage: 5 MG, 1 TABLET 2X/DAY
     Route: 048
     Dates: start: 20131125
  3. BENADRYL [Concomitant]
     Dosage: UNK
  4. MUCINEX DM [Concomitant]
     Dosage: UNK
  5. ZICAM, UNSPECIFIED [Concomitant]
  6. MULTIVITAMINS [Concomitant]
  7. VITAMIN B COMPLEX [Concomitant]
     Dosage: UNK
  8. KRILL OIL [Concomitant]
     Dosage: 1000 MG, UNK
  9. PREDNISONE [Concomitant]
     Dosage: 20 MG, UNK
  10. METHOTREXATE [Concomitant]
     Dosage: 2.5 MG, UNK
  11. TRAMADOL HYDROCHLORIDE [Concomitant]
     Dosage: 50 MG, UNK
  12. ASPIRIN [Concomitant]
     Dosage: 81 MG, UNK
  13. FOLIC ACID [Concomitant]
     Dosage: 1 MG, UNK
  14. PRILOSEC DR [Concomitant]
     Dosage: 40 MG, UNK
  15. TRIAMTERENE-HCTZ [Concomitant]
     Dosage: UNK (37.5-25 MG)
  16. LEXAPRO [Concomitant]
     Dosage: 20 MG, UNK
  17. CALCIUM + VITAMIN D [Concomitant]
     Dosage: UNK

REACTIONS (4)
  - Rhinorrhoea [Recovering/Resolving]
  - Sinus disorder [Recovering/Resolving]
  - White blood cell disorder [Unknown]
  - Glycosylated haemoglobin increased [Unknown]
